FAERS Safety Report 9775369 (Version 1)
Quarter: 2013Q4

REPORT INFORMATION
  Report Type: Spontaneous
  Country: US (occurrence: US)
  Receive Date: 20131220
  Receipt Date: 20131220
  Transmission Date: 20140711
  Serious: No
  Sender: FDA-Public Use
  Company Number: US-GALDERMA-US13003319

PATIENT
  Age: 36 Year
  Sex: Female

DRUGS (1)
  1. MIRVASO (BRIMONIDINE) TOPICAL GEL, 0.33% [Suspect]
     Indication: ROSACEA
     Dosage: 0.33%
     Route: 061
     Dates: start: 20131018, end: 20131023

REACTIONS (9)
  - Condition aggravated [Recovered/Resolved]
  - Rosacea [Recovered/Resolved]
  - Skin exfoliation [Recovered/Resolved]
  - Dry skin [Recovered/Resolved]
  - Skin irritation [Recovered/Resolved]
  - Skin warm [Recovered/Resolved]
  - Flushing [Recovered/Resolved]
  - Erythema [Recovered/Resolved]
  - Drug ineffective [Recovered/Resolved]
